FAERS Safety Report 8087976-9 (Version None)
Quarter: 2012Q1

REPORT INFORMATION
  Report Type: 
  Country: None (occurrence: None)
  Receive Date: 20120130
  Receipt Date: 20120124
  Transmission Date: 20120608
  Serious: Yes (Life-Threatening)
  Sender: FDA-Public Use
  Company Number: DE-ASTRAZENECA-2012SE05208

PATIENT
  Age: 26355 Day
  Sex: Male
  Weight: 70 kg

DRUGS (3)
  1. FRAXIPARIN [Suspect]
     Indication: PERCUTANEOUS CORONARY INTERVENTION
     Dosage: 0.3
     Route: 048
     Dates: start: 20111213, end: 20111215
  2. BRILIQUE [Suspect]
     Indication: PERCUTANEOUS CORONARY INTERVENTION
     Route: 048
     Dates: start: 20111213, end: 20111215
  3. ASPIRIN [Suspect]
     Indication: PERCUTANEOUS CORONARY INTERVENTION
     Dosage: DAILY
     Route: 048

REACTIONS (1)
  - HAEMOGLOBIN DECREASED [None]
